FAERS Safety Report 4686916-X (Version None)
Quarter: 2005Q2

REPORT INFORMATION
  Report Type: 
  Country: None (occurrence: None)
  Receive Date: 20050608
  Receipt Date: 20050526
  Transmission Date: 20051028
  Serious: Yes (Other)
  Sender: FDA-Public Use
  Company Number: 2005080605

PATIENT
  Age: 34 Year
  Sex: Female

DRUGS (1)
  1. ZYRTEC [Suspect]
     Indication: RHINITIS ALLERGIC
     Dosage: 10 MG ORAL
     Route: 048
     Dates: start: 20050519, end: 20050519

REACTIONS (2)
  - PARALYSIS [None]
  - RESPIRATORY DEPRESSION [None]
